FAERS Safety Report 6601489-X (Version None)
Quarter: 2010Q1

REPORT INFORMATION
  Report Type: 
  Country: None (occurrence: None)
  Receive Date: 20100225
  Receipt Date: 20100215
  Transmission Date: 20100710
  Serious: Yes (Hospitalization, Other)
  Sender: FDA-Public Use
  Company Number: GB-ABBOTT-04P-167-0282539-00

PATIENT
  Age: 22 Year
  Sex: Female

DRUGS (14)
  1. SEVOFLURANE [Suspect]
     Indication: GENERAL ANAESTHESIA
     Route: 055
  2. SEVOFLURANE [Suspect]
     Indication: POSTOPERATIVE ANALGESIA
  3. ONDANSETRON [Suspect]
     Indication: ANAESTHESIA
     Route: 042
  4. PROPOFOL [Suspect]
     Indication: GENERAL ANAESTHESIA
     Route: 042
  5. DIAMORPHINE [Suspect]
     Indication: ANAESTHESIA
     Route: 042
  6. DIAMORPHINE [Suspect]
     Indication: POSTOPERATIVE ANALGESIA
     Route: 042
  7. SULFASALAZINE [Concomitant]
     Indication: DRUG USE FOR UNKNOWN INDICATION
  8. DIAMORPHINE [Concomitant]
     Indication: PAIN MANAGEMENT
     Route: 042
  9. KETOROLAC TROMETHAMINE [Concomitant]
     Indication: PAIN MANAGEMENT
     Route: 042
  10. KETOROLAC TROMETHAMINE [Concomitant]
     Indication: POSTOPERATIVE ANALGESIA
  11. MEPERIDINE HCL [Concomitant]
     Indication: PAIN MANAGEMENT
     Route: 042
  12. CHLORPHENIRAMINE MALEATE [Concomitant]
     Indication: RASH MACULAR
     Route: 042
  13. OXYGEN [Concomitant]
     Indication: OXYGEN SUPPLEMENTATION
  14. HYDROCORTISONE [Concomitant]
     Indication: RASH MACULAR
     Route: 042

REACTIONS (10)
  - CEREBRAL DISORDER [None]
  - CONVULSION [None]
  - DYSTONIA [None]
  - EXTRAPYRAMIDAL DISORDER [None]
  - HYPERSENSITIVITY [None]
  - NO THERAPEUTIC RESPONSE [None]
  - OCULOGYRIC CRISIS [None]
  - PRURITUS [None]
  - RASH MACULAR [None]
  - UNEVALUABLE EVENT [None]
